FAERS Safety Report 24787735 (Version 3)
Quarter: 2025Q3

REPORT INFORMATION
  Report Type: Report from Study
  Country: US (occurrence: US)
  Receive Date: 20241230
  Receipt Date: 20250916
  Transmission Date: 20251021
  Serious: Yes (Other)
  Sender: ABBVIE
  Company Number: US-ABBVIE-6065750

PATIENT
  Age: 57 Year
  Sex: Female

DRUGS (3)
  1. SKYRIZI [Suspect]
     Active Substance: RISANKIZUMAB-RZAA
     Indication: Psoriasis
     Route: 058
     Dates: start: 2023
  2. SKYRIZI [Suspect]
     Active Substance: RISANKIZUMAB-RZAA
     Route: 058
     Dates: start: 2024
  3. EMGALITY [Concomitant]
     Active Substance: GALCANEZUMAB-GNLM
     Indication: Product used for unknown indication

REACTIONS (5)
  - Rotator cuff repair [Unknown]
  - Rotator cuff repair [Unknown]
  - Product preparation error [Unknown]
  - Tooth fracture [Recovered/Resolved]
  - Hepatitis B [Unknown]

NARRATIVE: CASE EVENT DATE: 20240522
